FAERS Safety Report 20301580 (Version 2)
Quarter: 2022Q1

REPORT INFORMATION
  Report Type: Spontaneous
  Country: CA (occurrence: CA)
  Receive Date: 20220105
  Receipt Date: 20220221
  Transmission Date: 20220423
  Serious: Yes (Other)
  Sender: FDA-Public Use
  Company Number: CA-PFIZER INC-202101882060

PATIENT
  Age: 52 Year
  Sex: Male

DRUGS (2)
  1. BRAFTOVI [Suspect]
     Active Substance: ENCORAFENIB
     Indication: Metastatic malignant melanoma
     Dosage: 450 MG, DAILY
     Dates: start: 20211227
  2. MEKTOVI [Suspect]
     Active Substance: BINIMETINIB
     Indication: Metastatic malignant melanoma
     Dosage: 45 MG, 2X/DAY
     Dates: start: 20211227

REACTIONS (10)
  - Blindness [Unknown]
  - Visual impairment [Unknown]
  - Eating disorder [Unknown]
  - Abdominal distension [Unknown]
  - Decreased appetite [Unknown]
  - Reading disorder [Unknown]
  - Illness [Unknown]
  - Diarrhoea [Unknown]
  - Dehydration [Unknown]
  - Retching [Unknown]

NARRATIVE: CASE EVENT DATE: 20211227
